FAERS Safety Report 15247297 (Version 1)
Quarter: 2018Q4

REPORT INFORMATION
  Report Type: Other
  Country: DE (occurrence: DE)
  Receive Date: 20180807
  Receipt Date: 20180807
  Transmission Date: 20190204
  Serious: Yes (Other)
  Sender: FDA-Public Use
  Company Number: DE-LUPIN PHARMACEUTICALS INC.-2018-01688

PATIENT
  Age: 55 Year
  Sex: Male

DRUGS (2)
  1. LEVETIRACETAM FILM COATED TABLETS, 1000 MG [Suspect]
     Active Substance: LEVETIRACETAM
     Indication: PRODUCT USED FOR UNKNOWN INDICATION
     Dosage: DOSE REDUCED
     Route: 065
  2. LEVETIRACETAM FILM COATED TABLETS, 1000 MG [Suspect]
     Active Substance: LEVETIRACETAM
     Dosage: UNK UNK, BID
     Route: 048
     Dates: start: 20170405

REACTIONS (2)
  - Hepatitis [Not Recovered/Not Resolved]
  - Hepatic enzyme increased [Not Recovered/Not Resolved]

NARRATIVE: CASE EVENT DATE: 201707
